FAERS Safety Report 4947768-3 (Version None)
Quarter: 2006Q1

REPORT INFORMATION
  Report Type: 
  Country: None (occurrence: None)
  Receive Date: 20060320
  Receipt Date: 20060222
  Transmission Date: 20060701
  Serious: Yes (Disabling)
  Sender: FDA-Public Use
  Company Number: JP-SP-2006-00441

PATIENT
  Age: 83 Year
  Sex: Male

DRUGS (5)
  1. IMMUCYST [Suspect]
     Indication: BLADDER CANCER
     Route: 043
     Dates: start: 20050823, end: 20051011
  2. IMMUCYST [Suspect]
     Route: 043
     Dates: start: 20050823, end: 20051011
  3. IMMUCYST [Suspect]
     Route: 043
     Dates: start: 20050823, end: 20051011
  4. PROPIVERINE HYDROCHLORIDE [Concomitant]
     Dates: start: 20050425, end: 20051107
  5. TAMSULOSIN HYDROCHLORIDE [Concomitant]
     Dates: start: 20050823, end: 20051107

REACTIONS (3)
  - MICTURITION URGENCY [None]
  - POLLAKIURIA [None]
  - UROGENITAL HAEMORRHAGE [None]
